FAERS Safety Report 26010897 (Version 2)
Quarter: 2025Q4

REPORT INFORMATION
  Report Type: Spontaneous
  Country: US (occurrence: US)
  Receive Date: 20251107
  Receipt Date: 20251201
  Transmission Date: 20260118
  Serious: Yes (Hospitalization)
  Sender: JOHNSON AND JOHNSON
  Company Number: US-JNJFOC-20251037488

PATIENT
  Sex: Female

DRUGS (1)
  1. STELARA [Suspect]
     Active Substance: USTEKINUMAB
     Indication: Psoriasis
     Route: 058
     Dates: end: 20230419

REACTIONS (3)
  - Colitis ulcerative [Unknown]
  - Therapy cessation [Unknown]
  - Psoriasis [Unknown]

NARRATIVE: CASE EVENT DATE: 20230419
